FAERS Safety Report 6046155-7 (Version None)
Quarter: 2009Q1

REPORT INFORMATION
  Report Type: 
  Country: None (occurrence: None)
  Receive Date: 20090121
  Receipt Date: 20090121
  Transmission Date: 20090719
  Serious: No
  Sender: FDA-Public Use
  Company Number: None

PATIENT
  Age: 48 Year
  Sex: Male
  Weight: 108.8633 kg

DRUGS (1)
  1. ARIPIPRAZOLE [Suspect]
     Indication: BIPOLAR DISORDER
     Dates: start: 20060601, end: 20080915

REACTIONS (2)
  - SOCIAL AVOIDANT BEHAVIOUR [None]
  - TARDIVE DYSKINESIA [None]
